FAERS Safety Report 5403629-7 (Version None)
Quarter: 2007Q3

REPORT INFORMATION
  Report Type: 
  Country: None (occurrence: None)
  Receive Date: 20070802
  Receipt Date: 20070726
  Transmission Date: 20080115
  Serious: Yes (Other)
  Sender: FDA-Public Use
  Company Number: PHEH2007US04693

PATIENT
  Sex: Female

DRUGS (4)
  1. ZOMETA [Suspect]
     Indication: METASTASES TO BONE
     Dosage: 4 MG Q3 MONTHS
     Dates: start: 20050315, end: 20060901
  2. AREDIA [Suspect]
     Indication: METASTASES TO BONE
     Dosage: 90 MG MONTHLY
     Dates: start: 20041005, end: 20041220
  3. FOSAMAX [Suspect]
     Dates: start: 20040927
  4. EXEMESTANE [Concomitant]
     Indication: METASTASES TO BONE
     Dosage: 25 UNK, QD
     Dates: start: 20040901

REACTIONS (6)
  - AORTIC ANEURYSM [None]
  - NERVE ROOT COMPRESSION [None]
  - OSTEOPOROSIS [None]
  - SPINAL COLUMN STENOSIS [None]
  - SURGERY [None]
  - THROMBOSIS [None]
